FAERS Safety Report 17255090 (Version 1)
Quarter: 2020Q1

REPORT INFORMATION
  Report Type: Spontaneous
  Country: IT (occurrence: IT)
  Receive Date: 20200109
  Receipt Date: 20200109
  Transmission Date: 20200409
  Serious: Yes (Hospitalization)
  Sender: FDA-Public Use
  Company Number: IT-TEVA-2020-IT-1165819

PATIENT
  Age: 88 Year
  Sex: Female

DRUGS (5)
  1. METOPROLOL. [Suspect]
     Active Substance: METOPROLOL
     Indication: ARRHYTHMIA
     Dosage: 75 MG PER DAY
     Route: 048
     Dates: start: 20190914, end: 20191013
  2. AMIODAR [Suspect]
     Active Substance: AMIODARONE
     Indication: ARRHYTHMIA
     Dates: start: 20190914, end: 20191013
  3. LASIX [Concomitant]
     Active Substance: FUROSEMIDE
     Dosage: 2 DOSAGE FORMS
     Route: 048
     Dates: end: 20191013
  4. LUVION 50 MG COMPRESSE [Concomitant]
     Active Substance: CANRENONE
     Dosage: 1 DOSAGE FORMS
     Dates: end: 20191013
  5. LIXIANA 30 MG FILM-COATED TABLETS [Suspect]
     Active Substance: EDOXABAN TOSYLATE
     Indication: ATRIAL FIBRILLATION
     Dosage: 1 DOSAGE FORMS PER DAY
     Route: 048
     Dates: start: 20190914, end: 20191013

REACTIONS (1)
  - Erythema [Not Recovered/Not Resolved]

NARRATIVE: CASE EVENT DATE: 20191013
